FAERS Safety Report 22304433 (Version 2)
Quarter: 2023Q2

REPORT INFORMATION
  Report Type: Spontaneous
  Country: IT (occurrence: IT)
  Receive Date: 20230510
  Receipt Date: 20230530
  Transmission Date: 20230721
  Serious: Yes (Other)
  Sender: FDA-Public Use
  Company Number: IT-ROCHE-3337520

PATIENT
  Age: 64 Year
  Sex: Female

DRUGS (13)
  1. METHOTREXATE [Suspect]
     Active Substance: METHOTREXATE
     Indication: B-cell lymphoma
     Dosage: UNK
     Route: 065
  2. CYTARABINE [Suspect]
     Active Substance: CYTARABINE
     Indication: B-cell lymphoma
     Dosage: UNK
     Route: 065
  3. CISPLATIN [Suspect]
     Active Substance: CISPLATIN
     Indication: B-cell lymphoma
     Dosage: UNK
     Route: 065
     Dates: start: 202010
  4. IFOSFAMIDE [Suspect]
     Active Substance: IFOSFAMIDE
     Indication: B-cell lymphoma
     Dosage: UNK
     Route: 065
     Dates: start: 202010
  5. ETOPOSIDE [Suspect]
     Active Substance: ETOPOSIDE
     Indication: B-cell lymphoma
     Dosage: UNK
     Route: 065
     Dates: start: 202010
  6. RITUXIMAB [Suspect]
     Active Substance: RITUXIMAB
     Indication: B-cell lymphoma
     Dosage: UNK
     Route: 065
     Dates: start: 202001
  7. RITUXIMAB [Suspect]
     Active Substance: RITUXIMAB
     Indication: Disease recurrence
     Dosage: UNK
     Route: 065
     Dates: start: 202010
  8. RITUXIMAB [Suspect]
     Active Substance: RITUXIMAB
     Indication: B-cell lymphoma stage IV
     Dosage: UNK
     Route: 065
  9. RITUXIMAB [Suspect]
     Active Substance: RITUXIMAB
     Indication: Metastatic lymphoma
     Dosage: UNK
     Route: 065
     Dates: start: 201904, end: 201910
  10. THIOTEPA [Suspect]
     Active Substance: THIOTEPA
     Indication: B-cell lymphoma
     Dosage: UNK
     Route: 065
  11. LEVOTHYROXINE [Concomitant]
     Active Substance: LEVOTHYROXINE
     Dosage: 50 MICROGRAM, QD (DAILY)
     Route: 065
  12. DEXAMETHASONE [Concomitant]
     Active Substance: DEXAMETHASONE
     Dosage: UNK
     Route: 065
  13. DESMOPRESSIN [Concomitant]
     Active Substance: DESMOPRESSIN
     Dosage: UNK
     Route: 065

REACTIONS (3)
  - Metastatic lymphoma [Unknown]
  - Disease progression [Unknown]
  - COVID-19 [Unknown]
